FAERS Safety Report 19630928 (Version 1)
Quarter: 2021Q3

REPORT INFORMATION
  Report Type: Spontaneous
  Country: US (occurrence: US)
  Receive Date: 20210728
  Receipt Date: 20210728
  Transmission Date: 20211014
  Serious: No
  Sender: FDA-Public Use
  Company Number: US-SA-2021SA247706

PATIENT
  Age: 46 Year
  Sex: Male

DRUGS (15)
  1. FABRAZYME [Suspect]
     Active Substance: AGALSIDASE BETA
     Indication: FABRY^S DISEASE
  2. NORMAL SALINE [Concomitant]
     Active Substance: SODIUM CHLORIDE
  3. VALSARTAN. [Concomitant]
     Active Substance: VALSARTAN
  4. BUPIVACAIN [Concomitant]
     Active Substance: BUPIVACAINE
  5. DIPHENHYDRAMINE. [Concomitant]
     Active Substance: DIPHENHYDRAMINE
  6. XOLAIR [Concomitant]
     Active Substance: OMALIZUMAB
  7. FABRAZYME [Suspect]
     Active Substance: AGALSIDASE BETA
     Indication: LIPIDOSIS
     Dosage: 90 MG, QOW
     Route: 041
     Dates: start: 20091016
  8. ADVAIR HFA [Concomitant]
     Active Substance: FLUTICASONE PROPIONATE\SALMETEROL XINAFOATE
  9. MORPHINE [Concomitant]
     Active Substance: MORPHINE
  10. RELISTOR [Concomitant]
     Active Substance: METHYLNALTREXONE BROMIDE
  11. EPINEPHRINE. [Concomitant]
     Active Substance: EPINEPHRINE
  12. STERILE WATER [Concomitant]
     Active Substance: WATER
  13. SPIRONOLACTONE. [Concomitant]
     Active Substance: SPIRONOLACTONE
  14. HEPARIN [Concomitant]
     Active Substance: HEPARIN SODIUM
  15. PLAVIX [Concomitant]
     Active Substance: CLOPIDOGREL BISULFATE

REACTIONS (1)
  - Intentional dose omission [Unknown]

NARRATIVE: CASE EVENT DATE: 20210722
